FAERS Safety Report 8106694-1 (Version None)
Quarter: 2012Q1

REPORT INFORMATION
  Report Type: 
  Country: None (occurrence: None)
  Receive Date: 20120202
  Receipt Date: 20120127
  Transmission Date: 20120608
  Serious: Yes (Hospitalization)
  Sender: FDA-Public Use
  Company Number: FR-SANOFI-AVENTIS-2012SA005810

PATIENT
  Age: 80 Year
  Sex: Male

DRUGS (9)
  1. RISPERDAL [Suspect]
     Route: 048
     Dates: end: 20120101
  2. LASIX [Suspect]
     Route: 048
     Dates: end: 20120101
  3. PANTOPRAZOLE [Concomitant]
     Route: 065
  4. ELIGARD [Concomitant]
     Route: 065
  5. CORDARONE [Suspect]
     Route: 048
     Dates: end: 20120101
  6. PREVISCAN [Concomitant]
     Route: 065
  7. ACETAMINOPHEN [Suspect]
     Route: 048
     Dates: end: 20120101
  8. CANDESARTAN CILEXETIL [Suspect]
     Route: 048
     Dates: end: 20120101
  9. POTASSIUM CHLORIDE [Concomitant]
     Route: 065

REACTIONS (2)
  - SEPTIC SHOCK [None]
  - PANCREATITIS ACUTE [None]
